FAERS Safety Report 7546198-8 (Version None)
Quarter: 2011Q2

REPORT INFORMATION
  Report Type: 
  Country: None (occurrence: None)
  Receive Date: 20110607
  Receipt Date: 20110524
  Transmission Date: 20111010
  Serious: Yes (Other)
  Sender: FDA-Public Use
  Company Number: 1000021410

PATIENT
  Age: 51 Year
  Sex: Female

DRUGS (3)
  1. ESCITALOPRAM [Suspect]
     Indication: DEPRESSION
     Dosage: 40 MG (40 MG, 1 IN 1 D), ORAL; 20 MG (20 MG, 1 IN 1), ORAL
     Route: 048
     Dates: start: 20110426
  2. ESCITALOPRAM [Suspect]
     Indication: DEPRESSION
     Dosage: 40 MG (40 MG, 1 IN 1 D), ORAL; 20 MG (20 MG, 1 IN 1), ORAL
     Route: 048
     Dates: end: 20110201
  3. CYCLOPHOSPHAMIDE [Suspect]
     Indication: BREAST ADENOMA
     Dosage: 1180 MG (1180 MG, 1 IN 1 D), INTRAVENOUS (NOT OTHERWISE SPECIFIED)
     Route: 042
     Dates: start: 20110115, end: 20110115

REACTIONS (1)
  - CYTOLYTIC HEPATITIS [None]
